FAERS Safety Report 4545148-6 (Version None)
Quarter: 2005Q1

REPORT INFORMATION
  Report Type: 
  Country: None (occurrence: None)
  Receive Date: 20050103
  Receipt Date: 20041214
  Transmission Date: 20050727
  Serious: Yes (Hospitalization)
  Sender: FDA-Public Use
  Company Number: 200413392GDS

PATIENT
  Age: 29 Year
  Sex: Female

DRUGS (5)
  1. ADALAT [Suspect]
     Indication: THREATENED LABOUR
     Dosage: 60 MG, TOTAL DAILY , ORAL
     Route: 048
     Dates: start: 20041105, end: 20041106
  2. TRACTOCILE [Concomitant]
  3. LEVOTHROID [Concomitant]
  4. FERO-GRADUMET/AUS/ [Concomitant]
  5. CELESTON [Concomitant]

REACTIONS (7)
  - ANXIETY [None]
  - DRUG EXPOSURE DURING PREGNANCY [None]
  - DYSPNOEA [None]
  - HYPERHIDROSIS [None]
  - OFF LABEL USE [None]
  - PALPITATIONS [None]
  - RESPIRATORY DISORDER [None]
